FAERS Safety Report 22281160 (Version 1)
Quarter: 2023Q2

REPORT INFORMATION
  Report Type: Spontaneous
  Country: DE (occurrence: DE)
  Receive Date: 20230504
  Receipt Date: 20230504
  Transmission Date: 20230721
  Serious: Yes (Other)
  Sender: FDA-Public Use
  Company Number: None

PATIENT
  Age: 26 Year
  Sex: Male

DRUGS (1)
  1. RINVOQ [Suspect]
     Active Substance: UPADACITINIB
     Indication: Dermatitis atopic
     Dosage: 15MG OR 30MG
     Route: 048
     Dates: start: 202207, end: 202304

REACTIONS (2)
  - Cellulitis [Recovering/Resolving]
  - Eczema herpeticum [Recovering/Resolving]

NARRATIVE: CASE EVENT DATE: 20230401
